FAERS Safety Report 9304254 (Version 1)
Quarter: 2013Q2

REPORT INFORMATION
  Report Type: Spontaneous
  Country: DE (occurrence: DE)
  Receive Date: 20130522
  Receipt Date: 20130522
  Transmission Date: 20140414
  Serious: Yes (Hospitalization, Other)
  Sender: FDA-Public Use
  Company Number: DE-MYLANLABS-2013S1010247

PATIENT
  Age: 0 Year
  Sex: Male
  Weight: 2.27 kg

DRUGS (3)
  1. DOXEPIN [Suspect]
     Dosage: 300 [MG/DF ]/ BETWEEN 100MG/D TO 300MG/D IF REQUIRED
     Route: 064
     Dates: start: 20110917, end: 20120516
  2. TRAMADOL AL [Suspect]
     Dosage: 500 [MG/D (BIS 100 MG/D) BEI BEDARF ]/ BETWEEN 100MG/D TO 500MG/D IF REQUIRED
     Route: 064
     Dates: start: 20120101, end: 20120516
  3. METHADONE [Suspect]
     Dosage: 60 [MG/D ]
     Route: 064
     Dates: start: 20110917, end: 20120516

REACTIONS (4)
  - Premature baby [Recovered/Resolved]
  - Drug withdrawal syndrome neonatal [Recovered/Resolved]
  - Myoclonus [Recovered/Resolved]
  - Supraventricular tachycardia [Recovered/Resolved]
